FAERS Safety Report 18759345 (Version 3)
Quarter: 2021Q1

REPORT INFORMATION
  Report Type: Spontaneous
  Country: TR (occurrence: TR)
  Receive Date: 20210119
  Receipt Date: 20210310
  Transmission Date: 20210419
  Serious: Yes (Hospitalization, Other)
  Sender: FDA-Public Use
  Company Number: TR-ALLERGAN-2102844US

PATIENT
  Sex: Female

DRUGS (8)
  1. MEMANTINE HCL ? BP [Suspect]
     Active Substance: MEMANTINE
     Dosage: 5 MG, QD
     Route: 065
     Dates: start: 202012, end: 202012
  2. ZHEDON [Concomitant]
     Indication: PRODUCT USED FOR UNKNOWN INDICATION
  3. ABILIFY [Suspect]
     Active Substance: ARIPIPRAZOLE
     Indication: PRODUCT USED FOR UNKNOWN INDICATION
     Dosage: 20 MG, QD
     Route: 065
  4. MEMANTINE HCL ? BP [Suspect]
     Active Substance: MEMANTINE
     Dosage: 20 MG
  5. SECITA [Concomitant]
     Indication: PRODUCT USED FOR UNKNOWN INDICATION
     Dosage: 20 MG, QD
  6. MEMANTINE HCL ? BP [Suspect]
     Active Substance: MEMANTINE
     Indication: DEMENTIA
     Dosage: 5 MG
     Dates: start: 20210104
  7. MEMANTINE HCL ? BP [Suspect]
     Active Substance: MEMANTINE
     Dosage: 10 MG, QD
     Dates: start: 202012, end: 202101
  8. CORASPIN [Concomitant]
     Active Substance: ASPIRIN
     Indication: PRODUCT USED FOR UNKNOWN INDICATION
     Dosage: 100 MG, QAM

REACTIONS (11)
  - Ammonia abnormal [Unknown]
  - Anxiety [Unknown]
  - Disturbance in attention [Unknown]
  - Malaise [Unknown]
  - Blood pressure increased [Unknown]
  - Somnolence [Unknown]
  - Irritability [Unknown]
  - Transient ischaemic attack [Recovered/Resolved]
  - Encephalopathy [Recovered/Resolved]
  - Fracture [Unknown]
  - Constipation [Unknown]

NARRATIVE: CASE EVENT DATE: 202006
